FAERS Safety Report 12419487 (Version 1)
Quarter: 2016Q2

REPORT INFORMATION
  Report Type: Spontaneous
  Country: US (occurrence: None)
  Receive Date: 20160527
  Receipt Date: 20160527
  Transmission Date: 20160815
  Serious: No
  Sender: FDA-Public Use
  Company Number: None

PATIENT
  Age: 63 Year
  Sex: Female
  Weight: 55.79 kg

DRUGS (1)
  1. RESTASIS [Suspect]
     Active Substance: CYCLOSPORINE
     Indication: DRY EYE
     Dosage: 0.4 ML EACH VIAL, 1 DROP CACH EYE, TWICE DAILY, EYEDROP
     Dates: start: 2013, end: 20160509

REACTIONS (3)
  - Foreign body sensation in eyes [None]
  - Lacrimation increased [None]
  - Ocular discomfort [None]

NARRATIVE: CASE EVENT DATE: 20160508
